FAERS Safety Report 18777120 (Version 1)
Quarter: 2021Q1

REPORT INFORMATION
  Report Type: Other
  Country: US (occurrence: US)
  Receive Date: 20210123
  Receipt Date: 20210123
  Transmission Date: 20210419
  Serious: No
  Sender: FDA-Public Use
  Company Number: US-AMAG PHARMACEUTICALS, INC.-AMAG202004221

PATIENT
  Age: 27 Year
  Sex: Female
  Weight: 99.88 kg

DRUGS (1)
  1. MAKENA [Suspect]
     Active Substance: HYDROXYPROGESTERONE CAPROATE
     Indication: PREMATURE DELIVERY
     Route: 058
     Dates: start: 20201022

REACTIONS (5)
  - Injection site rash [Unknown]
  - Product administered at inappropriate site [Unknown]
  - Injection site pruritus [Unknown]
  - Pruritus [Unknown]
  - Injection site warmth [Unknown]
